FAERS Safety Report 5606632-7 (Version None)
Quarter: 2008Q1

REPORT INFORMATION
  Report Type: 
  Country: None (occurrence: None)
  Receive Date: 20080125
  Receipt Date: 20080117
  Transmission Date: 20080703
  Serious: Yes (Hospitalization)
  Sender: FDA-Public Use
  Company Number: 2008-00301

PATIENT
  Age: 60 Year
  Sex: Female
  Weight: 47.2 kg

DRUGS (4)
  1. OXYTROL [Suspect]
     Dosage: 1 PATCH, SINGLE, TRANSDERMAL
     Route: 062
     Dates: start: 20080116, end: 20080116
  2. SYNTHROID [Concomitant]
  3. TRAZODONE HCL [Concomitant]
  4. KLONOPIN [Concomitant]

REACTIONS (3)
  - ANTICHOLINERGIC SYNDROME [None]
  - FALL [None]
  - OVERDOSE [None]
